FAERS Safety Report 23687281 (Version 1)
Quarter: 2024Q1

REPORT INFORMATION
  Report Type: Spontaneous
  Country: CN (occurrence: CN)
  Receive Date: 20240329
  Receipt Date: 20240329
  Transmission Date: 20240410
  Serious: Yes (Other)
  Sender: FDA-Public Use
  Company Number: CN-009507513-2403CHN007768

PATIENT
  Age: 73 Year
  Sex: Female

DRUGS (2)
  1. CILASTATIN SODIUM\IMIPENEM [Suspect]
     Active Substance: CILASTATIN SODIUM\IMIPENEM
     Indication: Chronic obstructive pulmonary disease
     Dosage: 1 G, Q12H, INTRAPUMP INJECTION
     Dates: start: 20240117, end: 20240118
  2. MEROPENEM [Suspect]
     Active Substance: MEROPENEM
     Indication: Chronic obstructive pulmonary disease
     Dosage: 0.5 G, QD, INTRAPUMP INJECTION
     Dates: start: 20240118, end: 20240121

REACTIONS (3)
  - Mental disorder [Recovering/Resolving]
  - Dysphoria [Unknown]
  - Product use in unapproved indication [Unknown]

NARRATIVE: CASE EVENT DATE: 20240117
